FAERS Safety Report 10041165 (Version 2)
Quarter: 2014Q1

REPORT INFORMATION
  Report Type: Spontaneous
  Country: IT (occurrence: IT)
  Receive Date: 20140327
  Receipt Date: 20140327
  Transmission Date: 20141002
  Serious: Yes (Other)
  Sender: FDA-Public Use
  Company Number: PHHY2013IT061677

PATIENT
  Age: 26 Year
  Sex: Female

DRUGS (2)
  1. GILENYA [Suspect]
     Indication: RELAPSING-REMITTING MULTIPLE SCLEROSIS
     Dosage: 0.5 MG, QD
     Route: 048
     Dates: start: 20130323
  2. GINODEN [Concomitant]
     Dosage: 0.075 MG PLUS 0.03 MG
     Dates: start: 20070701

REACTIONS (6)
  - Angioedema [Recovering/Resolving]
  - Erythema [Unknown]
  - Contusion [Unknown]
  - Ecchymosis [Recovered/Resolved]
  - Skin oedema [Unknown]
  - Extravasation blood [Unknown]
